FAERS Safety Report 21577494 (Version 1)
Quarter: 2022Q4

REPORT INFORMATION
  Report Type: Spontaneous
  Country: US (occurrence: US)
  Receive Date: 20221110
  Receipt Date: 20221110
  Transmission Date: 20230113
  Serious: Yes (Other)
  Sender: FDA-Public Use
  Company Number: US-OCULAR THERAPEUTIX-2022OCX00044

PATIENT
  Age: 76 Year
  Sex: Female

DRUGS (1)
  1. DEXAMETHASONE [Suspect]
     Active Substance: DEXAMETHASONE
     Indication: Inflammation

REACTIONS (1)
  - Dacryostenosis acquired [Unknown]
